FAERS Safety Report 17822764 (Version 1)
Quarter: 2020Q2

REPORT INFORMATION
  Report Type: Spontaneous
  Country: DE (occurrence: DE)
  Receive Date: 20200526
  Receipt Date: 20200526
  Transmission Date: 20200714
  Serious: Yes (Other)
  Sender: FDA-Public Use
  Company Number: DE-SUN PHARMACEUTICAL INDUSTRIES LTD-2020RR-248013

PATIENT
  Age: 21 Year
  Sex: Male
  Weight: 79 kg

DRUGS (1)
  1. CIPROFLOXACIN. [Suspect]
     Active Substance: CIPROFLOXACIN
     Indication: CYSTITIS NONINFECTIVE
     Dosage: 5 TAGE 2X1TBL. 500MG
     Route: 048
     Dates: start: 20200331, end: 20200404

REACTIONS (11)
  - Dry skin [Recovered/Resolved]
  - Suicidal ideation [Recovering/Resolving]
  - Muscle twitching [Recovered/Resolved]
  - Depression [Recovering/Resolving]
  - Constipation [Recovered/Resolved]
  - Eye pain [Recovered/Resolved]
  - Fatigue [Recovered/Resolved]
  - Night sweats [Recovered/Resolved]
  - Skin exfoliation [Recovered/Resolved]
  - Decreased appetite [Recovered/Resolved]
  - Anxiety [Recovering/Resolving]

NARRATIVE: CASE EVENT DATE: 20200405
